FAERS Safety Report 7367343-3 (Version None)
Quarter: 2011Q1

REPORT INFORMATION
  Report Type: 
  Country: None (occurrence: None)
  Receive Date: 20110322
  Receipt Date: 20110310
  Transmission Date: 20110831
  Serious: Yes (Other)
  Sender: FDA-Public Use
  Company Number: JP-ASTRAZENECA-2011SE15412

PATIENT
  Age: 20306 Day
  Sex: Male

DRUGS (8)
  1. MEROPEN [Suspect]
     Indication: FEBRILE NEUTROPENIA
     Route: 042
     Dates: start: 20101230, end: 20110204
  2. AMIKACIN SULFATE [Concomitant]
     Dates: start: 20101228, end: 20110129
  3. IDAMYCIN [Concomitant]
     Dates: start: 20101228, end: 20101230
  4. CYLOCIDE [Concomitant]
     Dates: start: 20101228, end: 20110103
  5. TARGOCID [Concomitant]
     Dates: start: 20110116, end: 20110129
  6. RECOMODULIN [Concomitant]
     Dates: start: 20101228, end: 20110102
  7. AMBISOME [Concomitant]
     Dates: start: 20110111, end: 20110123
  8. GRAN [Concomitant]
     Dates: start: 20110111, end: 20110121

REACTIONS (4)
  - ACTIVATED PARTIAL THROMBOPLASTIN TIME PROLONGED [None]
  - BLOOD ALKALINE PHOSPHATASE INCREASED [None]
  - ASPARTATE AMINOTRANSFERASE INCREASED [None]
  - ALANINE AMINOTRANSFERASE INCREASED [None]
